FAERS Safety Report 15679959 (Version 1)
Quarter: 2018Q4

REPORT INFORMATION
  Report Type: Spontaneous
  Country: US (occurrence: US)
  Receive Date: 20181120
  Receipt Date: 20181120
  Transmission Date: 20190205
  Serious: Yes (Other)
  Sender: FDA-Public Use
  Company Number: None

PATIENT
  Age: 69 Year
  Sex: Male

DRUGS (1)
  1. EYLEA [Suspect]
     Active Substance: AFLIBERCEPT
     Dates: start: 20180801, end: 20181119

REACTIONS (2)
  - Post procedural complication [None]
  - Non-infectious endophthalmitis [None]

NARRATIVE: CASE EVENT DATE: 20180814
